FAERS Safety Report 20921743 (Version 7)
Quarter: 2023Q1

REPORT INFORMATION
  Report Type: Report from Study
  Country: US (occurrence: US)
  Receive Date: 20220606
  Receipt Date: 20230207
  Transmission Date: 20230418
  Serious: Yes (Hospitalization, Other)
  Sender: FDA-Public Use
  Company Number: US-ABBVIE-22K-163-4385920-00

PATIENT
  Sex: Female

DRUGS (3)
  1. IMBRUVICA [Suspect]
     Active Substance: IBRUTINIB
     Indication: Chronic lymphocytic leukaemia
     Route: 048
     Dates: start: 20201019
  2. IMBRUVICA [Suspect]
     Active Substance: IBRUTINIB
     Indication: Chronic lymphocytic leukaemia
     Route: 048
  3. IMBRUVICA [Suspect]
     Active Substance: IBRUTINIB
     Indication: Chronic lymphocytic leukaemia
     Route: 048

REACTIONS (10)
  - Ruptured cerebral aneurysm [Unknown]
  - Brain operation [Unknown]
  - Amnesia [Unknown]
  - Stevens-Johnson syndrome [Unknown]
  - Sinusitis [Unknown]
  - Insomnia [Unknown]
  - Trismus [Unknown]
  - Lip haemorrhage [Unknown]
  - Purulent discharge [Unknown]
  - Stress [Unknown]
